FAERS Safety Report 10404702 (Version 2)
Quarter: 2014Q3

REPORT INFORMATION
  Report Type: Spontaneous
  Country: US (occurrence: US)
  Receive Date: 20140824
  Receipt Date: 20140824
  Transmission Date: 20150326
  Serious: Yes (Hospitalization, Other)
  Sender: FDA-Public Use
  Company Number: US-009507513-2009SP028413

PATIENT
  Sex: Female
  Weight: 58.97 kg

DRUGS (5)
  1. NUVARING [Suspect]
     Active Substance: ETHINYL ESTRADIOL\ETONOGESTREL
     Indication: CONTRACEPTION
     Route: 067
     Dates: start: 200701, end: 200709
  2. DILAUDID [Suspect]
     Active Substance: HYDROMORPHONE HYDROCHLORIDE
     Indication: HEADACHE
  3. MORPHINE [Suspect]
     Active Substance: MORPHINE
     Indication: HEADACHE
  4. OXYCONTIN [Suspect]
     Active Substance: OXYCODONE HYDROCHLORIDE
     Indication: HEADACHE
  5. OXYCODONE [Suspect]
     Active Substance: OXYCODONE
     Indication: HEADACHE

REACTIONS (12)
  - Abortion spontaneous [Unknown]
  - Vomiting [Recovering/Resolving]
  - Diplopia [Recovered/Resolved]
  - Pneumonia bacterial [Unknown]
  - Constipation [Recovering/Resolving]
  - Visual field defect [Unknown]
  - Intracranial venous sinus thrombosis [Recovered/Resolved]
  - Headache [Recovered/Resolved]
  - Muscle spasms [Unknown]
  - Cerebrovascular accident [Recovering/Resolving]
  - Nausea [Recovering/Resolving]
  - Unintended pregnancy [Unknown]

NARRATIVE: CASE EVENT DATE: 200705
